FAERS Safety Report 5022199-9 (Version None)
Quarter: 2006Q2

REPORT INFORMATION
  Report Type: 
  Country: None (occurrence: None)
  Receive Date: 20060609
  Receipt Date: 20060602
  Transmission Date: 20061013
  Serious: Yes (Hospitalization, Other)
  Sender: FDA-Public Use
  Company Number: US-BRISTOL-MYERS SQUIBB COMPANY-13400296

PATIENT
  Age: 51 Year
  Sex: Female
  Weight: 82 kg

DRUGS (7)
  1. TEQUIN [Suspect]
     Indication: DIVERTICULITIS
     Dates: start: 19990101, end: 20060601
  2. TEQUIN [Suspect]
     Indication: SINUSITIS
     Dates: start: 19990101, end: 20060601
  3. TEQUIN [Suspect]
     Indication: UPPER RESPIRATORY TRACT INFECTION
     Dates: start: 19990101, end: 20060601
  4. TEQUIN [Suspect]
     Indication: PNEUMONIA
     Dates: start: 19990101, end: 20060601
  5. ADVAIR DISKUS 100/50 [Concomitant]
  6. ALPRAZOLAM [Concomitant]
  7. PREDNISONE [Concomitant]
     Indication: PNEUMONIA

REACTIONS (15)
  - ANOREXIA [None]
  - ASTHENIA [None]
  - BLOOD GLUCOSE INCREASED [None]
  - CONFUSIONAL STATE [None]
  - DIZZINESS [None]
  - FATIGUE [None]
  - FEELING HOT [None]
  - HEADACHE [None]
  - HEART RATE INCREASED [None]
  - HYPERHIDROSIS [None]
  - LOSS OF CONSCIOUSNESS [None]
  - NAUSEA [None]
  - PALPITATIONS [None]
  - PYREXIA [None]
  - SYNCOPE [None]
